FAERS Safety Report 24970061 (Version 1)
Quarter: 2025Q1

REPORT INFORMATION
  Report Type: Report from Study
  Country: BR (occurrence: BR)
  Receive Date: 20250214
  Receipt Date: 20250214
  Transmission Date: 20250408
  Serious: Yes (Hospitalization)
  Sender: JOHNSON AND JOHNSON
  Company Number: BR-JNJFOC-20250223507

PATIENT
  Age: 15 Year
  Sex: Female
  Weight: 50 kg

DRUGS (1)
  1. INFLIXIMAB [Suspect]
     Active Substance: INFLIXIMAB
     Indication: Crohn^s disease
     Route: 041
     Dates: start: 20250109

REACTIONS (4)
  - Anal fistula [Unknown]
  - Anal skin tags [Unknown]
  - Rectal fissure [Unknown]
  - Weight increased [Unknown]
